FAERS Safety Report 20454936 (Version 1)
Quarter: 2022Q1

REPORT INFORMATION
  Report Type: Spontaneous
  Country: US (occurrence: None)
  Receive Date: 20220209
  Receipt Date: 20220209
  Transmission Date: 20220423
  Serious: No
  Sender: FDA-Public Use
  Company Number: None

PATIENT
  Age: 46 Year
  Sex: Female
  Weight: 112.5 kg

DRUGS (1)
  1. WEGOVY [Suspect]
     Active Substance: SEMAGLUTIDE
     Indication: Weight decreased
     Dates: start: 20210810, end: 20210831

REACTIONS (6)
  - Restlessness [None]
  - Anxiety [None]
  - Tremor [None]
  - Muscle twitching [None]
  - Musculoskeletal stiffness [None]
  - Sleep disorder [None]

NARRATIVE: CASE EVENT DATE: 20210831
